FAERS Safety Report 6851729-7 (Version None)
Quarter: 2010Q3

REPORT INFORMATION
  Report Type: 
  Country: None (occurrence: None)
  Receive Date: 20100717
  Receipt Date: 20071029
  Transmission Date: 20110219
  Serious: No
  Sender: FDA-Public Use
  Company Number: US-PFIZER INC-2007092625

PATIENT
  Sex: Female
  Weight: 113.4 kg

DRUGS (13)
  1. CHANTIX [Suspect]
     Indication: SMOKING CESSATION THERAPY
     Dosage: INTERVAL: EVERY DAY
     Dates: start: 20070901, end: 20071019
  2. GLUCOPHAGE [Concomitant]
  3. INSULIN [Concomitant]
  4. LANTUS [Concomitant]
  5. LISINOPRIL [Concomitant]
  6. ACETYLSALICYLIC ACID [Concomitant]
  7. PROTONIX [Concomitant]
  8. CLONIDINE [Concomitant]
  9. LIPITOR [Concomitant]
  10. MULTI-VITAMINS [Concomitant]
  11. CALCIUM CITRATE [Concomitant]
  12. IRON [Concomitant]
  13. METHADONE HCL [Concomitant]

REACTIONS (1)
  - DRUG SCREEN FALSE POSITIVE [None]
